FAERS Safety Report 10652487 (Version 1)
Quarter: 2014Q4

REPORT INFORMATION
  Report Type: Spontaneous
  Country: US (occurrence: None)
  Receive Date: 20141205
  Receipt Date: 20141205
  Transmission Date: 20150529
  Serious: Yes (Hospitalization)
  Sender: FDA-Public Use
  Company Number: USA-2014104737

PATIENT
  Age: 64 Year
  Sex: Male

DRUGS (13)
  1. APAP (PARACETAMOL) (UNKNOWN) [Concomitant]
  2. PRADAXA (DABIGATRAN ETEXILATE MESILATE) (UNKNOWN) [Concomitant]
  3. VALTREX (VALACICLOVIR HYDROCHLORIDE) (UNKNOWN) [Concomitant]
  4. AMBIEN (ZOLPIDEM TARTRATE) (UNKNOWN) [Concomitant]
  5. TOPROL (METOPROLOL SUCCINATE) (UNKNOWN) [Concomitant]
  6. DECADRON [Concomitant]
     Active Substance: DEXAMETHASONE
  7. WARFARIN (WARFARIN) (UNKNOWN) [Concomitant]
  8. ZOMETA [Concomitant]
     Active Substance: ZOLEDRONIC ACID
  9. PRBC (BLOOD CELLS, PACKED HUMAN) (UNKNOWN) [Concomitant]
  10. POMALYST [Suspect]
     Active Substance: POMALIDOMIDE
     Indication: PLASMA CELL MYELOMA
     Dosage: 4 MG, 21 IN 21 D, PO
     Route: 048
     Dates: start: 20141006, end: 20141026
  11. PRILOSEC (OMEPRAZOLE) (UNKNOWN) [Concomitant]
  12. LOVENOX (ENOXAPARIN SODIUM) (UNKNOWN) [Concomitant]
  13. HEPARIN [Concomitant]
     Active Substance: HEPARIN SODIUM

REACTIONS (3)
  - Hypercalcaemia [None]
  - Fatigue [None]
  - Dehydration [None]

NARRATIVE: CASE EVENT DATE: 20141006
